FAERS Safety Report 9948659 (Version 1)
Quarter: 2014Q1

REPORT INFORMATION
  Report Type: Spontaneous
  Country: US (occurrence: None)
  Receive Date: 20140122
  Receipt Date: 20140122
  Transmission Date: 20141002
  Serious: Yes (Other)
  Sender: FDA-Public Use
  Company Number: AEGR000217

PATIENT
  Age: 41 Year
  Sex: Female
  Weight: 64.4 kg

DRUGS (4)
  1. JUXTAPID [Suspect]
     Indication: TYPE IIA HYPERLIPIDAEMIA
     Route: 048
     Dates: start: 20130914, end: 2013
  2. INDERAL (PROPRANOLOL HYDROCHLORIDE) [Concomitant]
  3. TOPAMAX (TOPIRAMATE) [Concomitant]
  4. CAMBIA (DICLOFENAC POTASSIUM) [Concomitant]

REACTIONS (1)
  - Gastrointestinal disorder [None]
